FAERS Safety Report 8376506-X (Version None)
Quarter: 2012Q2

REPORT INFORMATION
  Report Type: 
  Country: None (occurrence: None)
  Receive Date: 20120522
  Receipt Date: 20120517
  Transmission Date: 20120825
  Serious: Yes (Hospitalization)
  Sender: FDA-Public Use
  Company Number: GB-B.I. PHARMACEUTICALS,INC./RIDGEFIELD-2012-UK-00641UK

PATIENT
  Sex: Male

DRUGS (9)
  1. NAPROXEN [Concomitant]
     Indication: ANALGESIC THERAPY
     Dosage: 1000 MG
  2. AMITRIPTYLINE HCL [Concomitant]
     Indication: NEURALGIA
     Dosage: 1 TO 2 TABLETS AT NIGHT
  3. ACETAMINOPHEN [Concomitant]
     Indication: POSTOPERATIVE ANALGESIA
     Dosage: 3 G
  4. ENALAPRIL MALEATE [Concomitant]
     Indication: HYPERTENSION
     Dosage: 20 MG
  5. TRAMADOL HYDROCHLORIDE [Concomitant]
     Indication: POSTOPERATIVE ANALGESIA
  6. METFORMIN HCL [Concomitant]
     Indication: DIABETES MELLITUS
     Dosage: 2550 MG
  7. PRADAXA [Suspect]
     Dosage: 220 MG
     Route: 048
     Dates: start: 20120422
  8. PRADAXA [Suspect]
     Indication: KNEE OPERATION
  9. NORVOMIX 30 FLEX [Concomitant]
     Indication: DIABETES MELLITUS
     Dosage: 2 ANZ

REACTIONS (4)
  - SKIN DISCOLOURATION [None]
  - RASH GENERALISED [None]
  - PRURITUS [None]
  - URTICARIA [None]
